FAERS Safety Report 18322815 (Version 1)
Quarter: 2020Q3

REPORT INFORMATION
  Report Type: Spontaneous
  Country: US (occurrence: US)
  Receive Date: 20200928
  Receipt Date: 20200928
  Transmission Date: 20201103
  Serious: No
  Sender: FDA-Public Use
  Company Number: US-MYLANLABS-2020M1079758

PATIENT
  Sex: Male

DRUGS (1)
  1. FULPHILA [Suspect]
     Active Substance: PEGFILGRASTIM-JMDB
     Indication: NEUTROPENIA
     Dosage: 1 DOSAGE FORM
     Route: 058

REACTIONS (2)
  - Product quality issue [None]
  - Device leakage [None]

NARRATIVE: CASE EVENT DATE: 20200912
